FAERS Safety Report 8809722 (Version 1)
Quarter: 2012Q4

REPORT INFORMATION
  Report Type: Report from Study
  Country: JP (occurrence: JP)
  Receive Date: 20120926
  Receipt Date: 20120926
  Transmission Date: 20130627
  Serious: Yes (Hospitalization)
  Sender: FDA-Public Use
  Company Number: JP-VERTEX PHARMACEUTICAL INC.-AE-2012-003017

PATIENT
  Age: 65 Year
  Sex: Female

DRUGS (17)
  1. VX-950 [Suspect]
     Indication: HEPATITIS C
     Dosage: 1500 mg, qd
     Route: 048
     Dates: start: 20120124, end: 20120216
  2. VX-950 [Suspect]
     Dosage: 1000 mg, qd
     Route: 048
     Dates: start: 20120306, end: 20120403
  3. REBETOL [Suspect]
     Indication: HEPATITIS C
     Dosage: 600 mg, qd
     Route: 048
     Dates: start: 20120124, end: 20120130
  4. REBETOL [Suspect]
     Dosage: 400 mg, qd
     Route: 048
     Dates: start: 20120131, end: 20120223
  5. REBETOL [Suspect]
     Dosage: 200 mg, qd
     Route: 048
     Dates: start: 20120224, end: 20120227
  6. REBETOL [Suspect]
     Dosage: 400 mg, qd
     Route: 048
     Dates: start: 20120306, end: 20120403
  7. PEGINTRON                          /01543001/ [Suspect]
     Indication: HEPATITIS C
     Dosage: 1.5 ?g/kg, UNK
     Route: 058
     Dates: start: 20120124, end: 20120403
  8. PEGINTRON                          /01543001/ [Suspect]
     Dosage: UNK
  9. GASMOTIN [Concomitant]
     Dosage: 15 mg, qd
     Route: 048
     Dates: start: 20120126
  10. BETAMAC                            /00314301/ [Concomitant]
     Dosage: 150 mg, qd
     Route: 048
     Dates: start: 20120128, end: 20120213
  11. ALLOPURINOL [Concomitant]
     Dosage: 200 mg, qd
     Route: 048
     Dates: start: 20120210, end: 20120221
  12. ALLOPURINOL [Concomitant]
     Dosage: 100 mg, qd
     Route: 048
     Dates: start: 20120222
  13. ALLOPURINOL [Concomitant]
     Dosage: 300 mg, qd
     Route: 048
     Dates: start: 20120204
  14. CONIEL [Concomitant]
     Dosage: 4 mg, qd
     Route: 048
     Dates: start: 20120515
  15. NU-LOTAN [Concomitant]
     Dosage: 50 mg, qd
     Route: 048
     Dates: start: 20120612
  16. PARIET [Concomitant]
     Dosage: 10 mg, qd
     Route: 048
  17. PROMAC                             /00024401/ [Concomitant]
     Dosage: 1 g, qd
     Route: 048

REACTIONS (4)
  - Malaise [Recovered/Resolved]
  - Anaemia [Recovered/Resolved]
  - Blood creatinine increased [Not Recovered/Not Resolved]
  - Blood uric acid increased [Not Recovered/Not Resolved]
